FAERS Safety Report 11396076 (Version 1)
Quarter: 2015Q3

REPORT INFORMATION
  Report Type: Spontaneous
  Country: US (occurrence: None)
  Receive Date: 20150818
  Receipt Date: 20150818
  Transmission Date: 20151125
  Serious: No
  Sender: FDA-Public Use
  Company Number: None

PATIENT
  Age: 47 Year
  Sex: Male
  Weight: 81.65 kg

DRUGS (1)
  1. RENEWAL SCALP ITCH AND DANDRUFF 3% RITE AID [Suspect]
     Active Substance: SALICYLIC ACID
     Indication: PRURITUS

REACTIONS (5)
  - Instillation site pain [None]
  - Instillation site erythema [None]
  - Incorrect route of drug administration [None]
  - Instillation site swelling [None]
  - Product packaging confusion [None]

NARRATIVE: CASE EVENT DATE: 20150816
